FAERS Safety Report 16158237 (Version 3)
Quarter: 2019Q3

REPORT INFORMATION
  Report Type: Spontaneous
  Country: JP (occurrence: JP)
  Receive Date: 20190404
  Receipt Date: 20190702
  Transmission Date: 20191004
  Serious: Yes (Hospitalization)
  Sender: FDA-Public Use
  Company Number: JP-PFIZER INC-2019136951

PATIENT
  Age: 45 Year
  Sex: Male
  Weight: 39 kg

DRUGS (18)
  1. LYRICA [Suspect]
     Active Substance: PREGABALIN
     Indication: HYPOAESTHESIA
     Dosage: 75 MG, 2X/DAY
     Route: 048
     Dates: start: 20150918, end: 20190316
  2. MEILAX [Concomitant]
     Active Substance: ETHYL LOFLAZEPATE
  3. ROZEREM [Concomitant]
     Active Substance: RAMELTEON
  4. LOXOPROFEN EMEC [Suspect]
     Active Substance: LOXOPROFEN
     Indication: PAIN
     Dosage: 60 MG, 2X/DAY
     Route: 048
     Dates: end: 20190316
  5. TRAZODONE [Concomitant]
     Active Substance: TRAZODONE HYDROCHLORIDE
  6. LYRICA [Suspect]
     Active Substance: PREGABALIN
     Indication: PAIN
  7. BROTIZOLAM [Concomitant]
     Active Substance: BROTIZOLAM
  8. SILACE [Concomitant]
     Active Substance: DOCUSATE SODIUM
  9. CYMBALTA [Concomitant]
     Active Substance: DULOXETINE HYDROCHLORIDE
  10. METHYCOBAL [Concomitant]
     Active Substance: METHYLCOBALAMIN
  11. MIYA-BM [Concomitant]
     Active Substance: CLOSTRIDIUM BUTYRICUM SPORES STRAIN M-55
  12. REBAMIPIDE [Concomitant]
     Active Substance: REBAMIPIDE
  13. ALINAMIN F [FURSULTIAMINE HYDROCHLORIDE] [Concomitant]
  14. TAKECAB [Concomitant]
     Active Substance: VONOPRAZAN FUMURATE
  15. LIPACREON [Concomitant]
     Active Substance: PANCRELIPASE
  16. FOIPAN [Concomitant]
     Active Substance: CAMOSTAT MESYLATE
  17. NOVORAPID [Concomitant]
     Active Substance: INSULIN ASPART
  18. BERIZYM [CELLULASE;DIASTASE;LIPASE;PANCREATIN] [Concomitant]

REACTIONS (3)
  - Oesophageal ulcer [Recovering/Resolving]
  - Oesophageal stenosis [Recovering/Resolving]
  - Oesophagitis [Recovering/Resolving]

NARRATIVE: CASE EVENT DATE: 20180112
